FAERS Safety Report 12893038 (Version 1)
Quarter: 2016Q4

REPORT INFORMATION
  Report Type: Spontaneous
  Country: CA (occurrence: CA)
  Receive Date: 20161028
  Receipt Date: 20161028
  Transmission Date: 20170207
  Serious: Yes (Other)
  Sender: FDA-Public Use
  Company Number: CA-ACTELION-A-US2016-144681

PATIENT
  Age: 70 Year
  Sex: Female

DRUGS (16)
  1. GLUCOSAMINE [Concomitant]
     Active Substance: GLUCOSAMINE
  2. VITAMIN C [Concomitant]
     Active Substance: ASCORBIC ACID
  3. ADCIRCA [Concomitant]
     Active Substance: TADALAFIL
  4. LASIX [Concomitant]
     Active Substance: FUROSEMIDE
  5. FERROMAX [Concomitant]
  6. SENOKOT [Concomitant]
     Active Substance: SENNOSIDES
  7. VENTOLIN [Concomitant]
     Active Substance: ALBUTEROL SULFATE
  8. ASA [Concomitant]
     Active Substance: ASPIRIN
  9. TRACLEER [Suspect]
     Active Substance: BOSENTAN
     Indication: PULMONARY HYPERTENSION
     Dosage: 125 MG, BID
     Route: 048
  10. FOLIC ACID. [Concomitant]
     Active Substance: FOLIC ACID
  11. PANTOLOC [Concomitant]
     Active Substance: PANTOPRAZOLE SODIUM
  12. SYNTHROID [Concomitant]
     Active Substance: LEVOTHYROXINE SODIUM
  13. CALCIUM [Concomitant]
     Active Substance: CALCIUM
  14. COVERSYL [Concomitant]
     Active Substance: PERINDOPRIL
  15. SPIRIVA [Concomitant]
     Active Substance: TIOTROPIUM BROMIDE MONOHYDRATE
  16. VITAMIN D [Concomitant]
     Active Substance: CHOLECALCIFEROL

REACTIONS (5)
  - Joint surgery [Unknown]
  - Discomfort [Unknown]
  - Carpal tunnel syndrome [Unknown]
  - Arthritis [Unknown]
  - Joint range of motion decreased [Unknown]
